FAERS Safety Report 7286997-3 (Version None)
Quarter: 2011Q1

REPORT INFORMATION
  Report Type: 
  Country: None (occurrence: None)
  Receive Date: 20110211
  Receipt Date: 20110203
  Transmission Date: 20110831
  Serious: No
  Sender: FDA-Public Use
  Company Number: US-BIOGENIDEC-2011BI004161

PATIENT
  Age: 53 Year
  Sex: Female

DRUGS (3)
  1. FENTANYL-100 [Concomitant]
     Indication: PAIN
     Dates: start: 20010101
  2. OXICODONE [Concomitant]
     Indication: PAIN
     Dates: start: 20010101
  3. TYSABRI [Suspect]
     Indication: MULTIPLE SCLEROSIS
     Route: 042
     Dates: start: 20090818

REACTIONS (2)
  - DERMATITIS INFECTED [None]
  - NASOPHARYNGITIS [None]
